FAERS Safety Report 11588425 (Version 1)
Quarter: 2015Q4

REPORT INFORMATION
  Report Type: Spontaneous
  Country: US (occurrence: None)
  Receive Date: 20151001
  Receipt Date: 20151001
  Transmission Date: 20160304
  Serious: Yes (Disabling, Other)
  Sender: FDA-Public Use
  Company Number: None

PATIENT
  Age: 51 Year
  Sex: Female
  Weight: 115.67 kg

DRUGS (3)
  1. DEPO-PROVERA [Suspect]
     Active Substance: MEDROXYPROGESTERONE ACETATE
     Indication: CONTRACEPTION
     Dosage: INJECTION EVERY 3 M
  2. LISINOPRIL. [Concomitant]
     Active Substance: LISINOPRIL
  3. METFORMIN [Concomitant]
     Active Substance: METFORMIN HYDROCHLORIDE

REACTIONS (3)
  - Haemorrhage [None]
  - Drug ineffective [None]
  - Diabetes mellitus inadequate control [None]

NARRATIVE: CASE EVENT DATE: 20150427
